FAERS Safety Report 7634413-1 (Version None)
Quarter: 2011Q3

REPORT INFORMATION
  Report Type: 
  Country: None (occurrence: None)
  Receive Date: 20110725
  Receipt Date: 20110713
  Transmission Date: 20111222
  Serious: Yes (Other)
  Sender: FDA-Public Use
  Company Number: PHHY2011US64735

PATIENT
  Sex: Male

DRUGS (2)
  1. ZOMETA [Suspect]
     Indication: METASTATIC NEOPLASM
     Dates: start: 20110512
  2. HORMONES [Concomitant]
     Indication: METASTATIC NEOPLASM

REACTIONS (2)
  - OSTEOPOROSIS [None]
  - WEIGHT DECREASED [None]
